FAERS Safety Report 12976327 (Version 1)
Quarter: 2016Q4

REPORT INFORMATION
  Report Type: Spontaneous
  Country: PL (occurrence: PL)
  Receive Date: 20161126
  Receipt Date: 20161126
  Transmission Date: 20170207
  Serious: Yes (Life-Threatening, Hospitalization)
  Sender: FDA-Public Use
  Company Number: PHHY2016PL158135

PATIENT
  Age: 58 Year
  Sex: Male
  Weight: 76 kg

DRUGS (1)
  1. METHOTREXATE. [Suspect]
     Active Substance: METHOTREXATE
     Indication: LYMPHOMA
     Dosage: 1750 MG, UNK
     Route: 042
     Dates: start: 20141108, end: 20141109

REACTIONS (10)
  - Choking [Recovering/Resolving]
  - Balance disorder [Recovering/Resolving]
  - Transaminases increased [Recovering/Resolving]
  - Neurological symptom [Recovering/Resolving]
  - Blood urea [Recovering/Resolving]
  - Blood uric acid [Recovering/Resolving]
  - Dysphagia [Recovering/Resolving]
  - Dysarthria [Recovering/Resolving]
  - Muscular weakness [Recovering/Resolving]
  - Blood creatinine [Recovering/Resolving]

NARRATIVE: CASE EVENT DATE: 20141112
